FAERS Safety Report 9431851 (Version 3)
Quarter: 2013Q4

REPORT INFORMATION
  Report Type: Report from Study
  Country: FR (occurrence: FR)
  Receive Date: 20130731
  Receipt Date: 20131107
  Transmission Date: 20140711
  Serious: Yes (Hospitalization)
  Sender: FDA-Public Use
  Company Number: PHHY2013FR079470

PATIENT
  Sex: Female

DRUGS (4)
  1. CERTICAN [Suspect]
     Indication: PROPHYLAXIS AGAINST TRANSPLANT REJECTION
     Dosage: 5.5 MG, UNK
     Route: 048
     Dates: start: 20120112, end: 20130530
  2. MYCOPHENOLIC ACID [Suspect]
     Indication: PROPHYLAXIS AGAINST TRANSPLANT REJECTION
     Dosage: 1080 MG, UNK
     Route: 048
     Dates: start: 20110426
  3. TRIATEC [Concomitant]
     Indication: HYPERTENSION
     Dosage: 1.25 MG, UNK
     Dates: start: 20130425, end: 20130530
  4. TRIATEC [Concomitant]
     Dosage: 1.25 MG, UNK
     Dates: start: 20130603

REACTIONS (6)
  - IgA nephropathy [Not Recovered/Not Resolved]
  - Nephrotic syndrome [Not Recovered/Not Resolved]
  - Proteinuria [Recovered/Resolved]
  - Renal failure acute [Recovered/Resolved]
  - Hyperthermia [Recovered/Resolved]
  - Pyelocaliectasis [Recovered/Resolved]
